FAERS Safety Report 7412689-3 (Version None)
Quarter: 2011Q2

REPORT INFORMATION
  Report Type: 
  Country: None (occurrence: None)
  Receive Date: 20110413
  Receipt Date: 20110224
  Transmission Date: 20111010
  Serious: Yes (Hospitalization, Other)
  Sender: FDA-Public Use
  Company Number: US-BAYER-201041474NA

PATIENT
  Age: 22 Year
  Sex: Female
  Weight: 63.039 kg

DRUGS (5)
  1. YASMIN [Suspect]
     Indication: CONTRACEPTION
  2. VICODIN [Concomitant]
     Dosage: UNK
     Route: 048
     Dates: start: 20060716
  3. YASMIN [Suspect]
     Indication: ACNE
     Dosage: UNK UNK, QD
     Dates: start: 20050101, end: 20090101
  4. OCELLA [Suspect]
     Indication: CONTRACEPTION
     Dosage: UNK, QD
     Dates: start: 20050101, end: 20090101
  5. IBUPROFEN [Concomitant]
     Dosage: UNK
     Route: 048

REACTIONS (4)
  - INJURY [None]
  - CHOLELITHIASIS [None]
  - CHOLECYSTITIS [None]
  - BILIARY COLIC [None]
